FAERS Safety Report 8265786-7 (Version None)
Quarter: 2012Q2

REPORT INFORMATION
  Report Type: 
  Country: None (occurrence: None)
  Receive Date: 20120406
  Receipt Date: 20120402
  Transmission Date: 20120825
  Serious: Yes (Hospitalization, Other)
  Sender: FDA-Public Use
  Company Number: PHHY2010CA01896

PATIENT
  Sex: Female

DRUGS (4)
  1. SANDOSTATIN LAR [Suspect]
     Dosage: 60 MG, QMO
     Route: 030
  2. SANDOSTATIN LAR [Suspect]
     Dosage: 60 MG, QMO
     Route: 030
  3. SANDOSTATIN LAR [Suspect]
     Indication: NEUROENDOCRINE TUMOUR
     Dosage: 60 MG, TIW
     Route: 030
     Dates: start: 20100111
  4. SANDOSTATIN LAR [Suspect]
     Dosage: 60 MG, TIW
     Route: 030

REACTIONS (41)
  - LUNG NEOPLASM [None]
  - GENERALISED OEDEMA [None]
  - WHEEZING [None]
  - MUSCULOSKELETAL CHEST PAIN [None]
  - LUNG INFECTION [None]
  - RECTAL TENESMUS [None]
  - SEPSIS [None]
  - EYE OEDEMA [None]
  - WHITE BLOOD CELL COUNT INCREASED [None]
  - COUGH [None]
  - DIZZINESS [None]
  - MUSCLE SPASMS [None]
  - HEART RATE INCREASED [None]
  - FAECES DISCOLOURED [None]
  - VERTIGO [None]
  - ABDOMINAL DISTENSION [None]
  - HYPOPHAGIA [None]
  - HOT FLUSH [None]
  - BLOOD PRESSURE INCREASED [None]
  - STRESS [None]
  - NASOPHARYNGITIS [None]
  - MALAISE [None]
  - EMOTIONAL DISTRESS [None]
  - HEADACHE [None]
  - DEFAECATION URGENCY [None]
  - PNEUMONIA [None]
  - FLUID RETENTION [None]
  - ABDOMINAL PAIN [None]
  - NERVOUSNESS [None]
  - NASAL CONGESTION [None]
  - TEARFULNESS [None]
  - ASTHENIA [None]
  - OEDEMA PERIPHERAL [None]
  - DIARRHOEA [None]
  - FLUSHING [None]
  - NAUSEA [None]
  - LOSS OF CONSCIOUSNESS [None]
  - DYSPNOEA [None]
  - SWELLING FACE [None]
  - BURNING SENSATION [None]
  - DECREASED APPETITE [None]
